FAERS Safety Report 10404932 (Version 1)
Quarter: 2014Q3

REPORT INFORMATION
  Report Type: Spontaneous
  Country: US (occurrence: US)
  Receive Date: 20140825
  Receipt Date: 20140825
  Transmission Date: 20150326
  Serious: Yes (Hospitalization)
  Sender: FDA-Public Use
  Company Number: US-BEH-2014044569

PATIENT
  Age: 10 Year

DRUGS (22)
  1. BANZEL [Concomitant]
     Active Substance: RUFINAMIDE
  2. EPI PEN JR. [Concomitant]
  3. CETIRIZINE [Concomitant]
     Active Substance: CETIRIZINE HYDROCHLORIDE
  4. VIMPAT [Concomitant]
     Active Substance: LACOSAMIDE
  5. ZONISAMIDE. [Concomitant]
     Active Substance: ZONISAMIDE
  6. DIPHENHYDRAMINE [Concomitant]
     Active Substance: DIPHENHYDRAMINE
  7. FLINTSTONES COMPLETE MULTIVITAMIN [Concomitant]
  8. ALBUTEROL. [Concomitant]
     Active Substance: ALBUTEROL
  9. NEXIUM [Concomitant]
     Active Substance: ESOMEPRAZOLE MAGNESIUM
  10. ACETAMINOPHEN. [Concomitant]
     Active Substance: ACETAMINOPHEN
  11. PULMICORT TURBUHALER [Concomitant]
     Active Substance: BUDESONIDE
  12. CELONTIN [Concomitant]
     Active Substance: METHSUXIMIDE
  13. SULFAMETHOXAZOLE [Concomitant]
     Active Substance: SULFAMETHOXAZOLE
  14. ACYCLOVIR. [Concomitant]
     Active Substance: ACYCLOVIR
  15. HIZENTRA [Suspect]
     Active Substance: HUMAN IMMUNOGLOBULIN G
     Indication: SELECTIVE IGM IMMUNODEFICIENCY
     Route: 058
  16. LIDOCAINE/PRILOCAINE [Concomitant]
  17. CHLORAL HYDRATE [Concomitant]
     Active Substance: CHLORAL HYDRATE
  18. ZANAFLEX [Concomitant]
     Active Substance: TIZANIDINE HYDROCHLORIDE
  19. TRANXENE T [Concomitant]
  20. ONDANSETRON [Concomitant]
     Active Substance: ONDANSETRON
  21. LAMICTAL [Concomitant]
     Active Substance: LAMOTRIGINE
  22. DIASTAT ACUDIAL [Concomitant]
     Active Substance: DIAZEPAM

REACTIONS (2)
  - Convulsion [Unknown]
  - Infusion site mass [Unknown]

NARRATIVE: CASE EVENT DATE: 201407
